FAERS Safety Report 7422981-4 (Version None)
Quarter: 2011Q2

REPORT INFORMATION
  Report Type: 
  Country: None (occurrence: None)
  Receive Date: 20110419
  Receipt Date: 20110202
  Transmission Date: 20111010
  Serious: Yes (Hospitalization)
  Sender: FDA-Public Use
  Company Number: FR-BRISTOL-MYERS SQUIBB COMPANY-15649221

PATIENT
  Age: 44 Year
  Sex: Male
  Weight: 68 kg

DRUGS (4)
  1. CETUXIMAB [Suspect]
     Indication: HEAD AND NECK CANCER
     Dosage: 28 TH INF
     Route: 042
     Dates: start: 20100614, end: 20110117
  2. CILENGITIDE [Suspect]
     Indication: HEAD AND NECK CANCER
     Dosage: 46 TH INF
     Route: 042
     Dates: start: 20100614, end: 20110117
  3. CISPLATIN [Suspect]
     Indication: HEAD AND NECK CANCER
     Dosage: RECENT 20SEP10
     Route: 042
     Dates: start: 20100614
  4. FLUOROURACIL [Suspect]
     Indication: HEAD AND NECK CANCER
     Dosage: CONTINOUS INFUSION FROM DAY 1-DAY 4 CYCLE RECENT ING 22 OCT2010
     Route: 042
     Dates: start: 20100614

REACTIONS (1)
  - HYPOTENSION [None]
